FAERS Safety Report 8215049-0 (Version None)
Quarter: 2012Q1

REPORT INFORMATION
  Report Type: 
  Country: None (occurrence: None)
  Receive Date: 20120316
  Receipt Date: 20120308
  Transmission Date: 20120608
  Serious: No
  Sender: FDA-Public Use
  Company Number: US-BAYER-2012-025292

PATIENT
  Age: 42 Year
  Sex: Male
  Weight: 107 kg

DRUGS (2)
  1. AVELOX [Suspect]
     Indication: LOCALISED OEDEMA
  2. AVELOX [Suspect]
     Indication: INFECTION

REACTIONS (5)
  - ASTHENIA [None]
  - URTICARIA [None]
  - DYSPNOEA [None]
  - DISCOMFORT [None]
  - DIZZINESS [None]
